FAERS Safety Report 15208824 (Version 1)
Quarter: 2018Q3

REPORT INFORMATION
  Report Type: Spontaneous
  Country: IT (occurrence: IT)
  Receive Date: 20180727
  Receipt Date: 20180727
  Transmission Date: 20181010
  Serious: Yes (Other)
  Sender: FDA-Public Use
  Company Number: IT-APOTEX-2018AP017750

PATIENT
  Age: 29 Year
  Sex: Male

DRUGS (1)
  1. EUTIMIL [Suspect]
     Active Substance: PAROXETINE HYDROCHLORIDE
     Dosage: 20 MG, QD
     Route: 065
     Dates: start: 2010

REACTIONS (5)
  - Anxiety [Unknown]
  - Panic attack [Unknown]
  - Dizziness [Unknown]
  - Nausea [Unknown]
  - Dysentery [Unknown]
